FAERS Safety Report 5852233-5 (Version None)
Quarter: 2008Q3

REPORT INFORMATION
  Report Type: 
  Country: None (occurrence: None)
  Receive Date: 20080821
  Receipt Date: 20080819
  Transmission Date: 20090109
  Serious: Yes (Hospitalization)
  Sender: FDA-Public Use
  Company Number: FR-BRISTOL-MYERS SQUIBB COMPANY-14307953

PATIENT
  Age: 58 Year
  Sex: Male

DRUGS (1)
  1. REYATAZ [Suspect]

REACTIONS (3)
  - HYDRONEPHROSIS [None]
  - INFLAMMATION [None]
  - PYREXIA [None]
